FAERS Safety Report 9364723 (Version 1)
Quarter: 2013Q2

REPORT INFORMATION
  Report Type: Report from Study
  Country: NL (occurrence: NL)
  Receive Date: 20130624
  Receipt Date: 20130624
  Transmission Date: 20140414
  Serious: Yes (Hospitalization, Other)
  Sender: FDA-Public Use
  Company Number: NL-TEVA-354285ISR

PATIENT
  Age: 46 Year
  Sex: Female

DRUGS (11)
  1. COPAXONE [Suspect]
     Dosage: 20 MILLIGRAM DAILY;
     Route: 058
     Dates: start: 20060921, end: 20120611
  2. LYRICA [Concomitant]
     Dosage: 150 MILLIGRAM DAILY;
  3. LYRICA [Concomitant]
     Dosage: 450 MILLIGRAM DAILY;
  4. TRAMADOL [Concomitant]
     Dosage: 100 MILLIGRAM DAILY;
  5. VESICARE [Concomitant]
     Dosage: 10 MILLIGRAM DAILY;
  6. ALPRAZOLAM [Concomitant]
     Dosage: WHEN NEEDED
  7. FLUOXETINE [Concomitant]
     Dosage: 20 MILLIGRAM DAILY;
  8. SUPRADYN [Concomitant]
     Dosage: 20 MILLIGRAM DAILY;
  9. ASCORBIC ACID [Concomitant]
  10. PHITAL FISH OIL [Concomitant]
  11. FENPROCOUMON [Concomitant]
     Dosage: DEPENDING ON BLOOD RESULTS THROMBOSIS

REACTIONS (7)
  - Hepatitis [Unknown]
  - Cholelithiasis [Not Recovered/Not Resolved]
  - Pneumonia [Unknown]
  - Functional gastrointestinal disorder [Unknown]
  - Diarrhoea [Not Recovered/Not Resolved]
  - Liver disorder [Unknown]
  - Constipation [Unknown]
